FAERS Safety Report 10233278 (Version 1)
Quarter: 2014Q2

REPORT INFORMATION
  Report Type: Spontaneous
  Country: US (occurrence: US)
  Receive Date: 20140612
  Receipt Date: 20140612
  Transmission Date: 20141212
  Serious: No
  Sender: FDA-Public Use
  Company Number: US-PFIZER INC-2014160788

PATIENT
  Age: 60 Year
  Sex: Female
  Weight: 81.63 kg

DRUGS (15)
  1. PRISTIQ [Suspect]
     Indication: DEPRESSION
     Dosage: 100 MG, UNK
     Route: 048
     Dates: start: 2010
  2. PRISTIQ [Suspect]
     Dosage: 200 MG, UNK
     Route: 048
     Dates: start: 2010, end: 201405
  3. PRISTIQ [Suspect]
     Dosage: 100 MG, UNK
     Route: 048
     Dates: start: 201405
  4. TEGRETOL [Concomitant]
     Dosage: UNK
  5. KLONOPIN [Concomitant]
     Dosage: UNK
  6. LEVOTHYROXINE [Concomitant]
     Dosage: UNK
  7. LIDOCAINE [Concomitant]
     Dosage: UNK
  8. LIDOCAINE [Concomitant]
     Dosage: UNK
  9. ZOFRAN [Concomitant]
     Dosage: UNK
  10. OXYCODONE [Concomitant]
     Dosage: UNK
  11. BENZTROPEINE [Concomitant]
     Dosage: UNK
  12. VICOPROFEN [Concomitant]
     Indication: DYSTONIA
     Dosage: UNK
  13. BOTOX [Concomitant]
     Indication: DYSTONIA
     Dosage: UNK
  14. IBUPROFEN [Concomitant]
     Indication: PAIN
     Dosage: UNK, AS NEEDED
  15. TYLENOL [Concomitant]
     Dosage: UNK

REACTIONS (3)
  - Therapeutic response changed [Unknown]
  - Neuralgia [Unknown]
  - Pain [Unknown]
